FAERS Safety Report 4595413-1 (Version None)
Quarter: 2005Q1

REPORT INFORMATION
  Report Type: 
  Country: None (occurrence: None)
  Receive Date: 20050224
  Receipt Date: 20050204
  Transmission Date: 20050727
  Serious: Yes (Death, Hospitalization, Other)
  Sender: FDA-Public Use
  Company Number: USA050290037

PATIENT
  Age: 46 Year
  Sex: Male

DRUGS (2)
  1. HUMULIN L [Suspect]
  2. NPH ILETIN I (BEEF-PORK) [Suspect]

REACTIONS (12)
  - CARDIAC ARREST [None]
  - CARDIAC OPERATION [None]
  - DRUG EFFECT DECREASED [None]
  - FOOT AMPUTATION [None]
  - GAIT DISTURBANCE [None]
  - INSULIN RESISTANCE [None]
  - MYOCARDIAL INFARCTION [None]
  - NERVE INJURY [None]
  - POSTOPERATIVE INFECTION [None]
  - SENSORY LOSS [None]
  - STAPHYLOCOCCAL INFECTION [None]
  - VISUAL ACUITY REDUCED [None]
